FAERS Safety Report 19847052 (Version 2)
Quarter: 2021Q4

REPORT INFORMATION
  Report Type: Spontaneous
  Country: US (occurrence: US)
  Receive Date: 20210917
  Receipt Date: 20211013
  Transmission Date: 20220303
  Serious: Yes (Other)
  Sender: FDA-Public Use
  Company Number: US-SANOFI-00766798

PATIENT
  Age: 57 Year
  Sex: Male
  Weight: 99.68 kg

DRUGS (5)
  1. DUPIXENT [Suspect]
     Active Substance: DUPILUMAB
     Indication: Nasal polyps
     Dosage: 300 MG, QOW
     Route: 058
     Dates: start: 20210226, end: 20210604
  2. MOMETASONE FUROATE [Concomitant]
     Active Substance: MOMETASONE FUROATE
     Dosage: UNK; 1-2 SPRAYS EACH SIDE ONCE DAILY
     Route: 045
  3. MUCINEX [Concomitant]
     Active Substance: GUAIFENESIN
     Dosage: 1 DF, QD
     Route: 048
  4. SINGULAIR [Concomitant]
     Active Substance: MONTELUKAST SODIUM
     Dosage: 1 DF, QD
     Route: 048
  5. AZELASTINE HYDROCHLORIDE [Concomitant]
     Active Substance: AZELASTINE HYDROCHLORIDE
     Dosage: UNK; 2 SPRAYS TWICE DAILY

REACTIONS (6)
  - Blindness [Unknown]
  - Vision blurred [Unknown]
  - Conjunctivitis [Unknown]
  - Eye pain [Unknown]
  - Eye pruritus [Unknown]
  - Ocular hyperaemia [Unknown]

NARRATIVE: CASE EVENT DATE: 20210101
